FAERS Safety Report 12688948 (Version 1)
Quarter: 2016Q3

REPORT INFORMATION
  Report Type: Spontaneous
  Country: US (occurrence: US)
  Receive Date: 20160825
  Receipt Date: 20160825
  Transmission Date: 20161109
  Serious: No
  Sender: FDA-Public Use
  Company Number: US-FRI-1000080335

PATIENT
  Age: 16 Year
  Sex: Female

DRUGS (1)
  1. LEXAPRO [Suspect]
     Active Substance: ESCITALOPRAM OXALATE
     Indication: DEPRESSION
     Dosage: 7.5MG
     Route: 048
     Dates: start: 201508, end: 201510

REACTIONS (4)
  - Sleep disorder [Recovering/Resolving]
  - Listless [Recovered/Resolved]
  - Heart rate increased [Recovered/Resolved]
  - Depression [Recovered/Resolved]

NARRATIVE: CASE EVENT DATE: 201510
